FAERS Safety Report 24529206 (Version 1)
Quarter: 2024Q4

REPORT INFORMATION
  Report Type: Spontaneous
  Country: US (occurrence: None)
  Receive Date: 20241021
  Receipt Date: 20241021
  Transmission Date: 20250115
  Serious: No
  Sender: Public
  Company Number: None

PATIENT
  Sex: Female

DRUGS (2)
  1. COSENTYX [Suspect]
     Active Substance: SECUKINUMAB
     Indication: Psoriasis
     Dosage: OTHER FREQUENCY : EVERY4WEEKS;?
     Route: 042
     Dates: start: 202407
  2. TAZLT AUTO INJ (1-PAK) [Concomitant]

REACTIONS (2)
  - Psoriasis [None]
  - Condition aggravated [None]
